FAERS Safety Report 19040125 (Version 1)
Quarter: 2021Q1

REPORT INFORMATION
  Report Type: Spontaneous
  Country: US (occurrence: US)
  Receive Date: 20210323
  Receipt Date: 20210323
  Transmission Date: 20210420
  Serious: No
  Sender: FDA-Public Use
  Company Number: US-GLAXOSMITHKLINE-USCH2021013711

PATIENT
  Sex: Female

DRUGS (1)
  1. VOLTAREN [Suspect]
     Active Substance: DICLOFENAC SODIUM
     Indication: PAIN
     Dosage: 100 G

REACTIONS (5)
  - Arthritis [Unknown]
  - Off label use [Unknown]
  - Therapeutic response unexpected [Unknown]
  - Back pain [Unknown]
  - Wrong technique in product usage process [Unknown]
